FAERS Safety Report 18854989 (Version 2)
Quarter: 2021Q1

REPORT INFORMATION
  Report Type: Spontaneous
  Country: JP (occurrence: JP)
  Receive Date: 20210205
  Receipt Date: 20210311
  Transmission Date: 20210420
  Serious: No
  Sender: FDA-Public Use
  Company Number: JP-ELI_LILLY_AND_COMPANY-JP202008000043

PATIENT
  Age: 76 Year
  Sex: Male

DRUGS (6)
  1. TRAZENTA [Concomitant]
     Active Substance: LINAGLIPTIN
     Indication: DIABETES MELLITUS
     Dosage: 5 MG, DAILY
     Dates: start: 20191019
  2. RESTAMIN #1 [Suspect]
     Active Substance: DIPHENHYDRAMINE
     Indication: DERMATITIS ALLERGIC
     Dosage: UNK, UNKNOWN
  3. XARELTO [Suspect]
     Active Substance: RIVAROXABAN
     Indication: DEEP VEIN THROMBOSIS
     Dosage: 15 MG, DAILY
     Dates: start: 20191006
  4. FEBURIC [Suspect]
     Active Substance: FEBUXOSTAT
     Indication: HYPERURICAEMIA
     Dosage: 20 MG, DAILY
     Dates: start: 20191019
  5. NEXIUM 1?2?3 [Suspect]
     Active Substance: AMOXICILLIN\CLARITHROMYCIN\ESOMEPRAZOLE
     Indication: GASTROOESOPHAGEAL REFLUX DISEASE
     Dosage: 20 MG, DAILY
     Dates: start: 20191019
  6. ADCIRCA [Suspect]
     Active Substance: TADALAFIL
     Indication: PULMONARY ARTERIAL HYPERTENSION
     Dosage: 40 MG, DAILY
     Route: 048
     Dates: start: 20101020

REACTIONS (2)
  - Nipple pain [Unknown]
  - Nipple swelling [Recovered/Resolved]

NARRATIVE: CASE EVENT DATE: 20200624
